FAERS Safety Report 9442395 (Version 1)
Quarter: 2013Q3

REPORT INFORMATION
  Report Type: Spontaneous
  Country: US (occurrence: US)
  Receive Date: 20130806
  Receipt Date: 20130806
  Transmission Date: 20140515
  Serious: No
  Sender: FDA-Public Use
  Company Number: US-GLAXOSMITHKLINE-A1019261A

PATIENT
  Age: 9 Year
  Sex: Male

DRUGS (2)
  1. ADVAIR [Suspect]
     Indication: BRONCHIAL HYPERREACTIVITY
     Dosage: 2PUFF PER DAY
     Route: 055
     Dates: start: 2010
  2. ZYRTEC [Concomitant]

REACTIONS (2)
  - Asthma [Not Recovered/Not Resolved]
  - Product quality issue [Unknown]
